FAERS Safety Report 12915445 (Version 2)
Quarter: 2017Q1

REPORT INFORMATION
  Report Type: Spontaneous
  Country: US (occurrence: US)
  Receive Date: 20161106
  Receipt Date: 20170216
  Transmission Date: 20170428
  Serious: No
  Sender: FDA-Public Use
  Company Number: US-RELYPSA-RLY2016003028

PATIENT
  Age: 88 Year
  Sex: Male

DRUGS (10)
  1. ATORVASTATIN [Concomitant]
     Active Substance: ATORVASTATIN
  2. CARVEDILOL. [Concomitant]
     Active Substance: CARVEDILOL
  3. MIRALAX [Concomitant]
     Active Substance: POLYETHYLENE GLYCOL 3350
  4. CENTRUM [Concomitant]
     Active Substance: VITAMINS
  5. VELTASSA [Suspect]
     Active Substance: PATIROMER
     Indication: HYPERKALAEMIA
     Dosage: 8.4 G, QD
     Route: 048
     Dates: start: 201607, end: 201609
  6. AMOXICILLIN. [Concomitant]
     Active Substance: AMOXICILLIN
  7. ASPIRIN. [Concomitant]
     Active Substance: ASPIRIN
  8. CALCITRIOL. [Concomitant]
     Active Substance: CALCITRIOL
  9. PANAX GINSENG [Concomitant]
     Active Substance: ASIAN GINSENG
  10. AMLODIPINE [Concomitant]
     Active Substance: AMLODIPINE BESYLATE

REACTIONS (2)
  - Mood altered [Not Recovered/Not Resolved]
  - Constipation [Not Recovered/Not Resolved]

NARRATIVE: CASE EVENT DATE: 201607
